FAERS Safety Report 6992198-6 (Version None)
Quarter: 2010Q3

REPORT INFORMATION
  Report Type: 
  Country: None (occurrence: None)
  Receive Date: 20100915
  Receipt Date: 20100907
  Transmission Date: 20110219
  Serious: Yes (Death, Hospitalization)
  Sender: FDA-Public Use
  Company Number: 015586

PATIENT
  Sex: Male
  Weight: 57 kg

DRUGS (8)
  1. CERTOLIZUMAB (CDP870) [Suspect]
     Indication: RHEUMATOID ARTHRITIS
     Dosage: (200 MG 1X/2 WEEKS, CDP870-50 SUBCUTANEOUS), (400 MG 1X/2 WEEKS SUBCUTANEOUS)
     Route: 058
     Dates: start: 20060608, end: 20070719
  2. CERTOLIZUMAB (CDP870) [Suspect]
     Indication: RHEUMATOID ARTHRITIS
     Dosage: (200 MG 1X/2 WEEKS, CDP870-50 SUBCUTANEOUS), (400 MG 1X/2 WEEKS SUBCUTANEOUS)
     Route: 058
     Dates: start: 20070816, end: 20100701
  3. CERTOLIZUMAB (CDP870) [Suspect]
     Indication: RHEUMATOID ARTHRITIS
     Dosage: (200 MG 1X/2 WEEKS, CDP870-50 SUBCUTANEOUS), (400 MG 1X/2 WEEKS SUBCUTANEOUS)
     Route: 058
     Dates: start: 20051222
  4. DICLOFENAC SODIUM [Concomitant]
  5. METHOTREXATE [Concomitant]
  6. ENALAPRIL MALEATE [Concomitant]
  7. ESOMEPRAZOLE [Concomitant]
  8. METOPROLOL TARTRATE [Concomitant]

REACTIONS (30)
  - ALANINE AMINOTRANSFERASE INCREASED [None]
  - ANAL POLYP [None]
  - AORTIC CALCIFICATION [None]
  - AORTIC ELONGATION [None]
  - ASPARTATE AMINOTRANSFERASE INCREASED [None]
  - ASTHENIA [None]
  - BLOOD AMYLASE INCREASED [None]
  - BLOOD CREATININE INCREASED [None]
  - BLOOD FIBRINOGEN INCREASED [None]
  - BLOOD GLUCOSE INCREASED [None]
  - BLOOD UREA INCREASED [None]
  - CARBOHYDRATE ANTIGEN 19-9 INCREASED [None]
  - CARCINOEMBRYONIC ANTIGEN INCREASED [None]
  - CARDIOMEGALY [None]
  - CHOLESTASIS [None]
  - COLON CANCER [None]
  - COLONIC OBSTRUCTION [None]
  - COLONIC POLYP [None]
  - GAMMA-GLUTAMYLTRANSFERASE INCREASED [None]
  - GASTRODUODENITIS [None]
  - HAEMATOCRIT DECREASED [None]
  - HIATUS HERNIA [None]
  - HYPOALBUMINAEMIA [None]
  - LARGE INTESTINAL ULCER [None]
  - METASTASES TO LIVER [None]
  - PLATELET COUNT DECREASED [None]
  - PLEURAL EFFUSION [None]
  - RED BLOOD CELL COUNT DECREASED [None]
  - WEIGHT DECREASED [None]
  - WHITE BLOOD CELL COUNT INCREASED [None]
